FAERS Safety Report 15405948 (Version 1)
Quarter: 2018Q3

REPORT INFORMATION
  Report Type: Spontaneous
  Country: US (occurrence: US)
  Receive Date: 20180920
  Receipt Date: 20180920
  Transmission Date: 20181010
  Serious: No
  Sender: FDA-Public Use
  Company Number: US-PFIZER INC-2018374780

PATIENT
  Age: 55 Year
  Sex: Male

DRUGS (2)
  1. NEURONTIN [Suspect]
     Active Substance: GABAPENTIN
     Dosage: 600 MG, 3X/DAY(600 MG TABLETS BY MOUTH THREE TIMES A DAY)
     Route: 048
  2. NEURONTIN [Suspect]
     Active Substance: GABAPENTIN
     Indication: NEURALGIA
     Dosage: 3000 MG, DAILY (FIVE 600 MG TABLETS DAILY)
     Dates: start: 2005

REACTIONS (5)
  - Back disorder [Unknown]
  - Paraesthesia [Unknown]
  - Drug ineffective for unapproved indication [Not Recovered/Not Resolved]
  - Gait disturbance [Unknown]
  - Burning sensation [Unknown]

NARRATIVE: CASE EVENT DATE: 2010
